FAERS Safety Report 12491785 (Version 1)
Quarter: 2016Q2

REPORT INFORMATION
  Report Type: Report from Study
  Country: VE (occurrence: VE)
  Receive Date: 20160623
  Receipt Date: 20160623
  Transmission Date: 20160815
  Serious: Yes (Death)
  Sender: FDA-Public Use
  Company Number: PHHY2014VE051139

PATIENT
  Age: 64 Year
  Sex: Female

DRUGS (1)
  1. AFINITOR [Suspect]
     Active Substance: EVEROLIMUS
     Indication: BONE CANCER
     Dosage: 10 MG, QD
     Route: 048
     Dates: start: 20140321

REACTIONS (11)
  - Malaise [Unknown]
  - Liver disorder [Unknown]
  - Dizziness [Unknown]
  - Stomatitis [Unknown]
  - Hepatic pain [Unknown]
  - Abdominal pain upper [Unknown]
  - Fatigue [Unknown]
  - Death [Fatal]
  - Dysstasia [Unknown]
  - Oral mucosal eruption [Unknown]
  - Product use issue [Unknown]

NARRATIVE: CASE EVENT DATE: 20150915
